FAERS Safety Report 10707036 (Version 1)
Quarter: 2015Q1

REPORT INFORMATION
  Report Type: Spontaneous
  Country: FR (occurrence: FR)
  Receive Date: 20150113
  Receipt Date: 20150113
  Transmission Date: 20150721
  Serious: Yes (Other)
  Sender: FDA-Public Use
  Company Number: FR-ASTRAZENECA-2015SE01007

PATIENT
  Age: 83 Year
  Sex: Male

DRUGS (5)
  1. INEXIUM [Suspect]
     Active Substance: ESOMEPRAZOLE
     Route: 048
     Dates: start: 20141203, end: 20141206
  2. MODOPAR [Suspect]
     Active Substance: BENSERAZIDE HYDROCHLORIDE\LEVODOPA
     Indication: PARKINSON^S DISEASE
     Route: 048
     Dates: start: 20141203, end: 20141206
  3. DOMPERIDONE ARROW [Suspect]
     Active Substance: DOMPERIDONE
     Indication: EPIGASTRIC DISCOMFORT
     Route: 048
     Dates: end: 20141206
  4. PARACETAMOL B BRAUN [Suspect]
     Active Substance: ACETAMINOPHEN
     Indication: PAIN
     Route: 042
     Dates: start: 20141205, end: 20141206
  5. AZILECT [Concomitant]
     Active Substance: RASAGILINE MESYLATE

REACTIONS (2)
  - Acute kidney injury [Unknown]
  - Hepatitis [Recovering/Resolving]

NARRATIVE: CASE EVENT DATE: 20141205
